FAERS Safety Report 7628279-3 (Version None)
Quarter: 2011Q3

REPORT INFORMATION
  Report Type: 
  Country: None (occurrence: None)
  Receive Date: 20110714
  Receipt Date: 20110630
  Transmission Date: 20111222
  Serious: Yes (Death)
  Sender: FDA-Public Use
  Company Number: DSJ-2011-08684

PATIENT
  Age: 52 Year
  Sex: Male
  Weight: 70.5 kg

DRUGS (13)
  1. AXITINIB [Suspect]
     Indication: METASTATIC RENAL CELL CARCINOMA
     Dosage: 10 MG (5 MG,2 IN 1 D),PER ORAL ; 6 MG (3 MG,2 IN 1 D),ORAL
     Route: 048
     Dates: start: 20110114, end: 20110425
  2. AXITINIB [Suspect]
     Indication: METASTATIC RENAL CELL CARCINOMA
     Dosage: 10 MG (5 MG,2 IN 1 D),PER ORAL ; 6 MG (3 MG,2 IN 1 D),ORAL
     Route: 048
     Dates: start: 20101126, end: 20110110
  3. FLOMOX (CEFCAPENE PIVOXIL HYDROCHLORIDE) (TABLET) (CEFCAPENE PIVOXIL H [Suspect]
     Indication: INFECTION PROPHYLAXIS
     Dosage: 300 MG,PER ORAL
     Route: 048
  4. LEVOTHYROXINE SODIUM [Suspect]
     Indication: THYROID FUNCTION TEST NORMAL
     Dosage: 50 MCG (50 MCG,1 IN 1 D),ORAL
     Route: 047
  5. NORVASC [Suspect]
     Indication: HYPERTENSION
     Dosage: 5 MG (5 MG,1 IN 1 D),ORAL
     Route: 048
     Dates: end: 20110425
  6. LOXONIN (LOXOPROFEN SODIUM) (TABLET) (LOXOPROFEN SODIUM) [Suspect]
     Indication: PAIN
     Dosage: 60 MG (20 MG,3 IN 1 D),PER ORAL ; 60 MG,PER ORAL
     Route: 048
     Dates: end: 20110121
  7. LOXONIN (LOXOPROFEN SODIUM) (TABLET) (LOXOPROFEN SODIUM) [Suspect]
     Indication: HEADACHE
     Dosage: 60 MG (20 MG,3 IN 1 D),PER ORAL ; 60 MG,PER ORAL
     Route: 048
     Dates: end: 20110121
  8. LOXONIN (LOXOPROFEN SODIUM) (TABLET) (LOXOPROFEN SODIUM) [Suspect]
     Indication: INFECTION PROPHYLAXIS
     Dosage: 60 MG (20 MG,3 IN 1 D),PER ORAL ; 60 MG,PER ORAL
     Route: 048
     Dates: end: 20110121
  9. LOXONIN (LOXOPROFEN SODIUM) (TABLET) (LOXOPROFEN SODIUM) [Suspect]
     Indication: PAIN
     Dosage: 60 MG (20 MG,3 IN 1 D),PER ORAL ; 60 MG,PER ORAL
     Route: 048
     Dates: start: 20110427
  10. LOXONIN (LOXOPROFEN SODIUM) (TABLET) (LOXOPROFEN SODIUM) [Suspect]
     Indication: HEADACHE
     Dosage: 60 MG (20 MG,3 IN 1 D),PER ORAL ; 60 MG,PER ORAL
     Route: 048
     Dates: start: 20110427
  11. LOXONIN (LOXOPROFEN SODIUM) (TABLET) (LOXOPROFEN SODIUM) [Suspect]
     Indication: INFECTION PROPHYLAXIS
     Dosage: 60 MG (20 MG,3 IN 1 D),PER ORAL ; 60 MG,PER ORAL
     Route: 048
     Dates: start: 20110427
  12. OLMESARTAN MEDOXOMIL [Suspect]
     Indication: BLOOD PRESSURE INCREASED
     Dosage: 20 MG,PER ORAL ; 40 MG,PER ORAL
     Route: 048
     Dates: start: 20110107, end: 20110425
  13. OLMESARTAN MEDOXOMIL [Suspect]
     Indication: BLOOD PRESSURE INCREASED
     Dosage: 20 MG,PER ORAL ; 40 MG,PER ORAL
     Route: 048
     Dates: start: 20101126, end: 20110105

REACTIONS (14)
  - HYPERTENSION [None]
  - LIPOMA [None]
  - CIRCULATORY COLLAPSE [None]
  - VENTRICULAR TACHYCARDIA [None]
  - HEADACHE [None]
  - CARDIOVASCULAR DISORDER [None]
  - ISCHAEMIA [None]
  - CYANOSIS [None]
  - CARDIO-RESPIRATORY ARREST [None]
  - CARDIAC HYPERTROPHY [None]
  - THROAT TIGHTNESS [None]
  - MUSCLE TIGHTNESS [None]
  - PULMONARY EMBOLISM [None]
  - CARDIOMYOPATHY [None]
